FAERS Safety Report 5308315-X (Version None)
Quarter: 2007Q2

REPORT INFORMATION
  Report Type: 
  Country: None (occurrence: None)
  Receive Date: 20070423
  Receipt Date: 20070423
  Transmission Date: 20071010
  Serious: Yes (Disabling)
  Sender: FDA-Public Use
  Company Number: None

PATIENT
  Age: 7 Year
  Sex: Male
  Weight: 26.3086 kg

DRUGS (1)
  1. LISTERINE AGENT COOL BLUE RINSE MCNEIL-PPC INC [Suspect]
     Indication: DENTAL CARE
     Dosage: 1 TSP    TWICE A DAY   PO
     Route: 048
     Dates: start: 20070205, end: 20070410

REACTIONS (8)
  - DENTAL CARIES [None]
  - GLOSSITIS [None]
  - PHARMACEUTICAL PRODUCT COMPLAINT [None]
  - PYREXIA [None]
  - SWELLING FACE [None]
  - TONSILLAR INFLAMMATION [None]
  - TOOTH ABSCESS [None]
  - TOOTH INFECTION [None]
